FAERS Safety Report 13146170 (Version 2)
Quarter: 2017Q3

REPORT INFORMATION
  Report Type: Report from Study
  Country: JP (occurrence: JP)
  Receive Date: 20170125
  Receipt Date: 20170725
  Transmission Date: 20171127
  Serious: Yes (Death)
  Sender: FDA-Public Use
  Company Number: JP-CELGENEUS-JPN-2017015801

PATIENT
  Age: 68 Year
  Sex: Female

DRUGS (3)
  1. ABRAXANE [Suspect]
     Active Substance: PACLITAXEL
     Indication: NON-SMALL CELL LUNG CANCER METASTATIC
     Dosage: 7.5 MILLIGRAM/SQ. METER
     Route: 041
     Dates: start: 20161110, end: 20161229
  2. OXYGEN. [Concomitant]
     Active Substance: OXYGEN
     Indication: OXYGEN SATURATION DECREASED
     Dosage: 15 L/MIN
     Route: 065
     Dates: start: 20170113
  3. OPSO [Concomitant]
     Active Substance: MORPHINE HYDROCHLORIDE
     Indication: FEELING ABNORMAL
     Route: 065
     Dates: start: 20161231

REACTIONS (1)
  - Pneumonitis [Fatal]

NARRATIVE: CASE EVENT DATE: 20170111
